FAERS Safety Report 11195321 (Version 1)
Quarter: 2015Q2

REPORT INFORMATION
  Report Type: Spontaneous
  Country: CH (occurrence: CH)
  Receive Date: 20150617
  Receipt Date: 20150617
  Transmission Date: 20150821
  Serious: Yes (Other)
  Sender: FDA-Public Use
  Company Number: CH-TEVA-570724ISR

PATIENT
  Age: 48 Year
  Sex: Female
  Weight: 43 kg

DRUGS (2)
  1. MODASOMIL [Suspect]
     Active Substance: MODAFINIL
     Dosage: 400 MILLIGRAM DAILY;
     Route: 048
     Dates: start: 201505
  2. MODASOMIL [Suspect]
     Active Substance: MODAFINIL
     Indication: HYPERSOMNIA
     Dosage: 600 MILLIGRAM DAILY; THE PATIENT RECEIVED TREATMENT AT 8H, 12H AND 16H EVERY DAY
     Route: 048
     Dates: start: 2013, end: 201505

REACTIONS (5)
  - Chest discomfort [Recovered/Resolved]
  - Stress cardiomyopathy [Recovered/Resolved]
  - Dyspnoea [Recovered/Resolved]
  - Dilatation ventricular [Recovered/Resolved]
  - Coronary artery stenosis [Unknown]

NARRATIVE: CASE EVENT DATE: 20150505
